FAERS Safety Report 5441606-0 (Version None)
Quarter: 2007Q3

REPORT INFORMATION
  Report Type: 
  Country: None (occurrence: None)
  Receive Date: 20070829
  Receipt Date: 20070817
  Transmission Date: 20080115
  Serious: Yes (Life-Threatening, Hospitalization)
  Sender: FDA-Public Use
  Company Number: 2007SP016775

PATIENT
  Age: 37 Year
  Sex: Male

DRUGS (2)
  1. PEG-INTRON [Suspect]
     Indication: HEPATITIS C
     Dosage: 80 MCG; QW; SC
     Route: 058
     Dates: start: 20070329, end: 20070629
  2. REBETOL [Suspect]
     Indication: HEPATITIS C
     Dosage: 800 MG; ; PO
     Route: 048

REACTIONS (1)
  - MYASTHENIA GRAVIS [None]
